FAERS Safety Report 5232725-2 (Version None)
Quarter: 2007Q1

REPORT INFORMATION
  Report Type: 
  Country: None (occurrence: None)
  Receive Date: 20070206
  Receipt Date: 20070206
  Transmission Date: 20070707
  Serious: Yes (Hospitalization, Disabling)
  Sender: FDA-Public Use
  Company Number: None

PATIENT
  Age: 37 Year
  Sex: Female
  Weight: 81.6475 kg

DRUGS (5)
  1. SUMATRIPTAN 50 MG [Suspect]
     Indication: MIGRAINE
     Dosage: 50 MG AS NEEDED PO
     Route: 048
     Dates: start: 19850627, end: 20061009
  2. SERTRALINE [Suspect]
     Indication: DEPRESSION
     Dosage: 50 MG DAILY PO
     Route: 048
     Dates: start: 20060909, end: 20061009
  3. IBUPROFEN [Concomitant]
  4. COMPAZINE [Concomitant]
  5. ROCEPHIN [Concomitant]

REACTIONS (7)
  - CONFUSIONAL STATE [None]
  - CRYING [None]
  - FEELING JITTERY [None]
  - INCOHERENT [None]
  - PARANOIA [None]
  - SEROTONIN SYNDROME [None]
  - TREMOR [None]
